FAERS Safety Report 6781962-4 (Version None)
Quarter: 2010Q2

REPORT INFORMATION
  Report Type: 
  Country: None (occurrence: None)
  Receive Date: 20100621
  Receipt Date: 20100610
  Transmission Date: 20101027
  Serious: Yes (Hospitalization)
  Sender: FDA-Public Use
  Company Number: FR-PFIZER INC-2010073421

PATIENT
  Age: 72 Year
  Sex: Male

DRUGS (9)
  1. ATARAX [Suspect]
     Dosage: 25 MG, DAILY
     Route: 048
     Dates: start: 20100330, end: 20100405
  2. NEXIUM [Suspect]
     Dosage: 80 MG, DAILY
     Route: 042
     Dates: start: 20100401, end: 20100408
  3. DIFFU K [Concomitant]
  4. PETHIDINE [Concomitant]
  5. BACTRIM [Concomitant]
  6. CORTANCYL [Concomitant]
  7. LASIX [Concomitant]
  8. ISOPTIN [Concomitant]
  9. INNOHEP [Concomitant]

REACTIONS (1)
  - LEUKOPENIA [None]
